FAERS Safety Report 22061723 (Version 1)
Quarter: 2023Q1

REPORT INFORMATION
  Report Type: Report from Study
  Country: DE (occurrence: DE)
  Receive Date: 20230304
  Receipt Date: 20230304
  Transmission Date: 20230418
  Serious: Yes (Other)
  Sender: FDA-Public Use
  Company Number: DE-ABBVIE-4234124

PATIENT
  Sex: Female

DRUGS (1)
  1. RINVOQ [Suspect]
     Active Substance: UPADACITINIB
     Indication: Rheumatoid arthritis
     Route: 048
     Dates: start: 20221024

REACTIONS (4)
  - Dental operation [Recovered/Resolved]
  - Pyrexia [Recovered/Resolved]
  - Coronavirus infection [Recovered/Resolved]
  - Impaired healing [Not Recovered/Not Resolved]
